FAERS Safety Report 5531282-0 (Version None)
Quarter: 2008Q1

REPORT INFORMATION
  Report Type: 
  Country: None (occurrence: None)
  Receive Date: 20071127
  Receipt Date: 20071113
  Transmission Date: 20080703
  Serious: Yes (Hospitalization)
  Sender: FDA-Public Use
  Company Number: 2007SP023375

PATIENT
  Age: 69 Year
  Sex: Male

DRUGS (8)
  1. RINDERON A (BETAMETHASONE SODIUM PHOSPHATE/FRANDIOMYCIN SULFATE) [Suspect]
     Indication: INFECTION PROPHYLAXIS
     Route: 047
     Dates: start: 20071019
  2. FLOMOX (CEFCAPENE PIVOXIL HYDROCHLORIDE) [Suspect]
     Indication: INFECTION PROPHYLAXIS
     Dosage: 300 MG; QD; PO
     Route: 048
     Dates: start: 20071019, end: 20071022
  3. DIAMOX [Concomitant]
  4. ASPARA K [Concomitant]
  5. LEVOFLOXACIN [Concomitant]
  6. BRONUCK [Concomitant]
  7. ZYLORIC [Concomitant]
  8. URALYT [Concomitant]

REACTIONS (3)
  - HEPATIC NECROSIS [None]
  - LIVER DISORDER [None]
  - NASOPHARYNGITIS [None]
